FAERS Safety Report 11920141 (Version 1)
Quarter: 2016Q1

REPORT INFORMATION
  Report Type: Spontaneous
  Country: PE (occurrence: PE)
  Receive Date: 20160115
  Receipt Date: 20160115
  Transmission Date: 20160526
  Serious: Yes (Other)
  Sender: FDA-Public Use
  Company Number: PE-PFIZER INC-2015361502

PATIENT
  Age: 52 Year
  Sex: Female

DRUGS (1)
  1. LYRICA [Suspect]
     Active Substance: PREGABALIN
     Indication: HERNIA PAIN
     Dosage: 75 MG, 2X/DAY
     Dates: start: 2014, end: 201510

REACTIONS (3)
  - Hypersomnia [Recovered/Resolved]
  - Intervertebral disc protrusion [Unknown]
  - Condition aggravated [Unknown]
